FAERS Safety Report 4493988-4 (Version None)
Quarter: 2004Q4

REPORT INFORMATION
  Report Type: 
  Country: None (occurrence: None)
  Receive Date: 20041104
  Receipt Date: 20041104
  Transmission Date: 20050328
  Serious: Yes (Hospitalization)
  Sender: FDA-Public Use
  Company Number: None

PATIENT
  Sex: Male
  Weight: 83.0083 kg

DRUGS (2)
  1. EPIRUBICIN [Suspect]
     Indication: LIPOSARCOMA
     Dosage: 47 MG  QD  INTRAVENOU
     Route: 042
     Dates: start: 20041020, end: 20041023
  2. IFOSFAMIDE [Suspect]
     Indication: LIPOSARCOMA
     Dosage: 5200 MG  QD  INTRAVENOU
     Route: 042
     Dates: start: 20041020, end: 20041023

REACTIONS (1)
  - PYREXIA [None]
